FAERS Safety Report 6354020-0 (Version None)
Quarter: 2009Q3

REPORT INFORMATION
  Report Type: 
  Country: None (occurrence: None)
  Receive Date: 20090908
  Receipt Date: 20090820
  Transmission Date: 20100115
  Serious: Yes (Hospitalization)
  Sender: FDA-Public Use
  Company Number: 2009AL000590

PATIENT
  Age: 49 Year
  Sex: Female

DRUGS (40)
  1. DIGOXIN [Suspect]
     Dosage: 0.25MG, DAILY, PO
     Route: 048
  2. XANAX [Concomitant]
  3. LEXAPRO [Concomitant]
  4. LANTUS [Concomitant]
  5. TYLENOL (CAPLET) [Concomitant]
  6. ALDACTONE [Concomitant]
  7. LAC-HYDRIN [Concomitant]
  8. BAZA [Concomitant]
  9. LASIX [Concomitant]
  10. LEVAQUIN [Concomitant]
  11. BENAZEPRIL HYDROCHLORIDE [Concomitant]
  12. PEPCID [Concomitant]
  13. LOTENSIN [Concomitant]
  14. CARDIZEM [Concomitant]
  15. AMARYL [Concomitant]
  16. CLARITIN [Concomitant]
  17. METOPROLOL TARTRATE [Concomitant]
  18. TORSEMIDE [Concomitant]
  19. COUMADIN [Concomitant]
  20. HEPARIN [Concomitant]
  21. MAXZIDE [Concomitant]
  22. TILACOR [Concomitant]
  23. TAMBOCOR [Concomitant]
  24. TAZTIA [Concomitant]
  25. KLOR-CON [Concomitant]
  26. MYLANTA [Concomitant]
  27. ANTACID TAB [Concomitant]
  28. ASPIRIN [Concomitant]
  29. BENADRYL [Concomitant]
  30. VICODIN [Concomitant]
  31. PHENERGAN [Concomitant]
  32. RESTORIL [Concomitant]
  33. SOLU-MEDROL [Concomitant]
  34. JANUVIA [Concomitant]
  35. NITROGLYCERIN [Concomitant]
  36. NOVOLOG [Concomitant]
  37. INSULIN [Concomitant]
  38. NEUTRA-PHOS [Concomitant]
  39. NOVOLOG MIX INSULIN [Concomitant]
  40. OXYGEN [Concomitant]

REACTIONS (33)
  - ACTIVITIES OF DAILY LIVING IMPAIRED [None]
  - ANHEDONIA [None]
  - ANXIETY [None]
  - ASTHENIA [None]
  - ATRIAL FIBRILLATION [None]
  - BACK PAIN [None]
  - BLOOD POTASSIUM DECREASED [None]
  - BREATH SOUNDS ABNORMAL [None]
  - CARDIAC FAILURE CONGESTIVE [None]
  - CHEST PAIN [None]
  - EAR PAIN [None]
  - ECONOMIC PROBLEM [None]
  - EMOTIONAL DISTRESS [None]
  - FEELING ABNORMAL [None]
  - FLUID OVERLOAD [None]
  - GASTROOESOPHAGEAL REFLUX DISEASE [None]
  - GENERALISED OEDEMA [None]
  - HYPOGLYCAEMIA [None]
  - INJURY [None]
  - INTERNATIONAL NORMALISED RATIO DECREASED [None]
  - MENTAL DISORDER [None]
  - PAIN [None]
  - PAIN IN EXTREMITY [None]
  - PALPITATIONS [None]
  - PANIC ATTACK [None]
  - PICKWICKIAN SYNDROME [None]
  - POSTMENOPAUSAL HAEMORRHAGE [None]
  - POSTNASAL DRIP [None]
  - PROTHROMBIN TIME PROLONGED [None]
  - SINUSITIS [None]
  - SLEEP APNOEA SYNDROME [None]
  - SOCIAL AVOIDANT BEHAVIOUR [None]
  - UTERINE LEIOMYOMA [None]
